FAERS Safety Report 13334990 (Version 2)
Quarter: 2017Q1

REPORT INFORMATION
  Report Type: Report from Study
  Country: None (occurrence: US)
  Receive Date: 20170315
  Receipt Date: 20170317
  Transmission Date: 20170428
  Serious: Yes (Hospitalization, Other)
  Sender: FDA-Public Use
  Company Number: US-ABBVIE-17K-163-1849801-00

PATIENT
  Age: 55 Year
  Sex: Male
  Weight: 117.59 kg

DRUGS (1)
  1. HUMIRA [Suspect]
     Active Substance: ADALIMUMAB
     Indication: RHEUMATOID ARTHRITIS
     Route: 058
     Dates: start: 20160509

REACTIONS (7)
  - Dyspnoea [Recovered/Resolved]
  - Pain in jaw [Unknown]
  - Coronary artery stenosis [Unknown]
  - Chest pain [Recovered/Resolved]
  - Syncope [Unknown]
  - Nausea [Unknown]
  - Palpitations [Unknown]

NARRATIVE: CASE EVENT DATE: 20170110
